APPROVED DRUG PRODUCT: FLUDEOXYGLUCOSE F18
Active Ingredient: FLUDEOXYGLUCOSE F-18
Strength: 20-200mCi/ML
Dosage Form/Route: INJECTABLE;INTRAVENOUS
Application: A203736 | Product #001
Applicant: MIDWEST MEDICAL ISOTOPES LLC CYCLOTRON DIV
Approved: Nov 19, 2015 | RLD: No | RS: No | Type: DISCN